FAERS Safety Report 21027049 (Version 1)
Quarter: 2022Q2

REPORT INFORMATION
  Report Type: Spontaneous
  Country: FR (occurrence: FR)
  Receive Date: 20220630
  Receipt Date: 20220630
  Transmission Date: 20220721
  Serious: Yes (Life-Threatening)
  Sender: FDA-Public Use
  Company Number: None

PATIENT
  Age: 35 Year
  Sex: Male

DRUGS (6)
  1. PREGABALIN [Suspect]
     Active Substance: PREGABALIN
     Dosage: UNK
  2. HALOPERIDOL [Suspect]
     Active Substance: HALOPERIDOL
     Dosage: UNK
  3. OXAZEPAM [Suspect]
     Active Substance: OXAZEPAM
     Dosage: UNK
  4. COCAINE [Suspect]
     Active Substance: COCAINE
     Dosage: UNK
  5. CANNABIS SATIVA SUBSP. INDICA TOP [Suspect]
     Active Substance: CANNABIS SATIVA SUBSP. INDICA TOP
     Dosage: UNK
  6. SUBUTEX [Suspect]
     Active Substance: BUPRENORPHINE HYDROCHLORIDE
     Dosage: UNK

REACTIONS (4)
  - Drug abuse [Unknown]
  - Coma [Recovered/Resolved]
  - Oxygen saturation decreased [Recovered/Resolved]
  - Miosis [Recovered/Resolved]
